FAERS Safety Report 17731641 (Version 1)
Quarter: 2020Q2

REPORT INFORMATION
  Report Type: Spontaneous
  Country: US (occurrence: US)
  Receive Date: 20200501
  Receipt Date: 20200501
  Transmission Date: 20200714
  Serious: Yes (Other)
  Sender: FDA-Public Use
  Company Number: US-009507513-2004USA008276

PATIENT
  Age: 72 Year
  Sex: Male

DRUGS (3)
  1. SINEMET [Suspect]
     Active Substance: CARBIDOPA\LEVODOPA
     Indication: PARKINSON^S DISEASE
     Dosage: UNK
     Route: 048
  2. SINEMET [Suspect]
     Active Substance: CARBIDOPA\LEVODOPA
     Dosage: 25/100 (UNITS NOT REPORTED), (1 TABLET TID)
     Route: 048
     Dates: start: 20200323, end: 20200401
  3. NUPLAZID [Suspect]
     Active Substance: PIMAVANSERIN TARTRATE
     Indication: HALLUCINATION
     Dosage: 34 MILLIGRAM DAILY (1 CAPSULE DAILY)
     Route: 048
     Dates: start: 20200320, end: 20200401

REACTIONS (5)
  - Urinary incontinence [Recovered/Resolved]
  - Drooling [Recovered/Resolved]
  - Hallucination [Recovered/Resolved]
  - Freezing phenomenon [Recovered/Resolved]
  - Fatigue [Recovered/Resolved]

NARRATIVE: CASE EVENT DATE: 20200328
